FAERS Safety Report 13506986 (Version 3)
Quarter: 2017Q3

REPORT INFORMATION
  Report Type: Report from Study
  Country: None (occurrence: US)
  Receive Date: 20170503
  Receipt Date: 20170825
  Transmission Date: 20171127
  Serious: Yes (Hospitalization, Other)
  Sender: FDA-Public Use
  Company Number: US-ABBVIE-17K-163-1955787-00

PATIENT
  Age: 56 Year
  Sex: Female
  Weight: 88 kg

DRUGS (3)
  1. HUMIRA [Suspect]
     Active Substance: ADALIMUMAB
     Indication: PSORIATIC ARTHROPATHY
  2. METHOTREXATE. [Concomitant]
     Active Substance: METHOTREXATE
     Indication: PRODUCT USED FOR UNKNOWN INDICATION
  3. HUMIRA [Suspect]
     Active Substance: ADALIMUMAB
     Indication: RHEUMATOID ARTHRITIS
     Route: 058

REACTIONS (9)
  - Dermatitis allergic [Unknown]
  - Postoperative fever [Recovered/Resolved]
  - Gastrostomy [Recovered/Resolved]
  - Drug hypersensitivity [Unknown]
  - Diarrhoea [Recovered/Resolved]
  - Impaired gastric emptying [Unknown]
  - Contusion [Unknown]
  - Stoma site extravasation [Recovered/Resolved]
  - Diabetic gastroparesis [Recovered/Resolved]

NARRATIVE: CASE EVENT DATE: 20170323
